FAERS Safety Report 11058513 (Version 3)
Quarter: 2015Q3

REPORT INFORMATION
  Report Type: Spontaneous
  Country: JP (occurrence: None)
  Receive Date: 20150421
  Receipt Date: 20150702
  Transmission Date: 20151125
  Serious: Yes (Hospitalization)
  Sender: FDA-Public Use
  Company Number: 2015-11061

PATIENT
  Age: 71 Year
  Sex: Female
  Weight: 45 kg

DRUGS (3)
  1. SANCOBA [Concomitant]
     Active Substance: CYANOCOBALAMIN
  2. EYLEA [Suspect]
     Active Substance: AFLIBERCEPT
     Indication: AGE-RELATED MACULAR DEGENERATION
     Dosage: EVERY 2 MONTHS
     Route: 031
  3. GATIFLO [Concomitant]
     Active Substance: GATIFLOXACIN

REACTIONS (7)
  - Ear infection [None]
  - Headache [None]
  - Trismus [None]
  - Rash [None]
  - Pyrexia [None]
  - Upper respiratory tract infection [None]
  - Ear pain [None]

NARRATIVE: CASE EVENT DATE: 20150206
